FAERS Safety Report 11073753 (Version 2)
Quarter: 2015Q2

REPORT INFORMATION
  Report Type: Spontaneous
  Country: DE (occurrence: DE)
  Receive Date: 20150428
  Receipt Date: 20150430
  Transmission Date: 20150821
  Serious: Yes (Other)
  Sender: FDA-Public Use
  Company Number: GXKR2015DE002172

PATIENT
  Sex: Female

DRUGS (1)
  1. ZOLEDRONATE [Suspect]
     Active Substance: ZOLEDRONIC ACID
     Indication: PLASMA CELL MYELOMA
     Dosage: SEVERAL YEARS AT UNREPORTED DOSE
     Route: 042

REACTIONS (2)
  - Pain [Unknown]
  - Osteonecrosis of jaw [Unknown]
